FAERS Safety Report 4467925-2 (Version None)
Quarter: 2005Q1

REPORT INFORMATION
  Report Type: 
  Country: None (occurrence: None)
  Receive Date: 20041004
  Receipt Date: 20040924
  Transmission Date: 20050727
  Serious: Yes (Hospitalization)
  Sender: FDA-Public Use
  Company Number: 2004-06-1138

PATIENT
  Age: 54 Year
  Sex: Male
  Weight: 68.0396 kg

DRUGS (3)
  1. NASONEX [Suspect]
     Indication: SINUSITIS
     Dosage: 1 SPRAY ONCE NASAL SPRAY
     Route: 045
     Dates: start: 20040610, end: 20040610
  2. ADVIL COLD AND SINUS [Suspect]
     Indication: COUGH
     Dosage: 2 TABS HS ORAL
     Route: 048
     Dates: start: 20040610, end: 20040610
  3. PROPANOLOL TABLETS [Concomitant]

REACTIONS (5)
  - AGGRESSION [None]
  - CONFUSIONAL STATE [None]
  - DEPRESSION [None]
  - DISORIENTATION [None]
  - NEUROLOGICAL SYMPTOM [None]
